FAERS Safety Report 19949419 (Version 2)
Quarter: 2021Q4

REPORT INFORMATION
  Report Type: Report from Study
  Country: FR (occurrence: FR)
  Receive Date: 20211013
  Receipt Date: 20211021
  Transmission Date: 20220303
  Serious: Yes (Hospitalization)
  Sender: FDA-Public Use
  Company Number: FR-SUN PHARMACEUTICAL INDUSTRIES LTD-2021RR-314336

PATIENT
  Sex: Female

DRUGS (11)
  1. LETROZOLE [Suspect]
     Active Substance: LETROZOLE
     Indication: Breast cancer
     Dosage: 2.5 MILLIGRAM, QD
     Route: 065
     Dates: start: 20190416, end: 20201005
  2. LETROZOLE [Suspect]
     Active Substance: LETROZOLE
     Dosage: 2.5 MILLIGRAM, QD
     Route: 065
     Dates: start: 20201028
  3. TRASTUZUMAB [Suspect]
     Active Substance: TRASTUZUMAB
     Indication: Breast cancer
     Dosage: 6 MILLIGRAM/KILOGRAM, 1 DOSE/3 WEEKS
     Route: 065
     Dates: start: 20190416, end: 20200922
  4. TRASTUZUMAB [Suspect]
     Active Substance: TRASTUZUMAB
     Dosage: 276 MILLIGRAM/KILOGRAM, UNK
     Route: 065
     Dates: start: 20201028
  5. PALBOCICLIB [Suspect]
     Active Substance: PALBOCICLIB
     Indication: Breast cancer
     Dosage: 125 MILLIGRAM, UNK
     Route: 065
     Dates: start: 20190416, end: 20201005
  6. PALBOCICLIB [Suspect]
     Active Substance: PALBOCICLIB
     Dosage: 125 MILLIGRAM, UNK
     Route: 065
     Dates: start: 20201029
  7. PERTUZUMAB\TRASTUZUMAB [Suspect]
     Active Substance: PERTUZUMAB\TRASTUZUMAB
     Indication: Breast cancer
     Dosage: 420 MILLIGRAM, 1 DOSE/3 WEEKS
     Route: 065
     Dates: start: 20190416, end: 20200922
  8. PERTUZUMAB\TRASTUZUMAB [Suspect]
     Active Substance: PERTUZUMAB\TRASTUZUMAB
     Dosage: 420 MILLIGRAM, 1 DOSE/3 WEEKS
     Route: 065
     Dates: start: 20201028
  9. POTASSIUM CHLORIDE [Concomitant]
     Active Substance: POTASSIUM CHLORIDE
     Indication: Product used for unknown indication
     Dosage: UNK
     Route: 065
  10. CEFTRIAXONE SODIUM W/TAZOBACTAM [Concomitant]
     Indication: Product used for unknown indication
     Dosage: UNK
     Route: 065
  11. CLONIDINE;FENTANYL [Concomitant]
     Indication: Product used for unknown indication
     Dosage: UNK
     Route: 065
     Dates: start: 20190115

REACTIONS (1)
  - General physical health deterioration [Recovered/Resolved]

NARRATIVE: CASE EVENT DATE: 20201013
